FAERS Safety Report 16456708 (Version 1)
Quarter: 2019Q3

REPORT INFORMATION
  Report Type: Spontaneous
  Country: PR (occurrence: PR)
  Receive Date: 20190619
  Receipt Date: 20190619
  Transmission Date: 20191004
  Serious: No
  Sender: FDA-Public Use
  Company Number: None

PATIENT
  Age: 78 Year
  Sex: Female
  Weight: 49.5 kg

DRUGS (2)
  1. MTHYLPREDNISOLONE [Concomitant]
     Dates: start: 20190508, end: 20190513
  2. LEVOFLOXACIN. [Suspect]
     Active Substance: LEVOFLOXACIN
     Indication: BRONCHITIS
     Route: 041
     Dates: start: 20190508, end: 20190513

REACTIONS (2)
  - Erythema [None]
  - Rash [None]

NARRATIVE: CASE EVENT DATE: 20190513
